FAERS Safety Report 23974988 (Version 3)
Quarter: 2024Q4

REPORT INFORMATION
  Report Type: Spontaneous
  Country: US (occurrence: US)
  Receive Date: 20240614
  Receipt Date: 20241124
  Transmission Date: 20250114
  Serious: No
  Sender: SANOFI AVENTIS
  Company Number: US-SA-SAC20240611001238

PATIENT
  Age: 27 Year
  Sex: Female

DRUGS (2)
  1. DUPIXENT [Suspect]
     Active Substance: DUPILUMAB
     Indication: Dermatitis atopic
     Dosage: 600 MG, 1X
     Route: 058
     Dates: start: 202405, end: 202405
  2. DUPIXENT [Suspect]
     Active Substance: DUPILUMAB
     Indication: Dermatitis
     Dosage: 300 MG, QOW
     Route: 058
     Dates: start: 2024

REACTIONS (22)
  - Chest pain [Recovered/Resolved]
  - Lymphadenopathy [Recovered/Resolved]
  - Mental status changes [Unknown]
  - General physical condition abnormal [Unknown]
  - Chest pain [Unknown]
  - Swelling [Unknown]
  - Condition aggravated [Unknown]
  - Dermatitis [Unknown]
  - Allergy to animal [Unknown]
  - Seasonal allergy [Unknown]
  - Mycotic allergy [Unknown]
  - Dysphagia [Unknown]
  - Lymphadenopathy [Unknown]
  - Condition aggravated [Unknown]
  - Erythema [Unknown]
  - Condition aggravated [Unknown]
  - Dizziness [Recovered/Resolved]
  - Skin burning sensation [Unknown]
  - Pruritus [Unknown]
  - Rash [Unknown]
  - Arthralgia [Unknown]
  - Arthralgia [Recovered/Resolved]

NARRATIVE: CASE EVENT DATE: 20240101
